FAERS Safety Report 12257389 (Version 1)
Quarter: 2016Q2

REPORT INFORMATION
  Report Type: Report from Study
  Country: BR (occurrence: BR)
  Receive Date: 20160412
  Receipt Date: 20160412
  Transmission Date: 20160815
  Serious: Yes (Death, Hospitalization)
  Sender: FDA-Public Use
  Company Number: PHHY2015BR006032

PATIENT
  Age: 63 Year
  Sex: Male
  Weight: 55 kg

DRUGS (5)
  1. PREDNISONE. [Concomitant]
     Active Substance: PREDNISONE
     Indication: PRODUCT USED FOR UNKNOWN INDICATION
     Dosage: 1 DF (ONE TABLET), QD
     Route: 048
  2. GILENYA [Suspect]
     Active Substance: FINGOLIMOD HYDROCHLORIDE
     Indication: MULTIPLE SCLEROSIS
     Dosage: 0.5 MG, QD
     Route: 048
  3. GLIFAGE [Concomitant]
     Active Substance: METFORMIN HYDROCHLORIDE
     Indication: DIABETES MELLITUS
     Dosage: UNK
     Route: 065
  4. RIVOTRIL [Concomitant]
     Active Substance: CLONAZEPAM
     Indication: SLEEP DISORDER
     Dosage: 0.5 DF (HALF TABLET), QD
     Route: 048
  5. PRELONE [Concomitant]
     Active Substance: PREDNISOLONE
     Indication: MULTIPLE SCLEROSIS
     Dosage: UNK
     Route: 065

REACTIONS (16)
  - Asthenia [Recovering/Resolving]
  - Confusional state [Recovering/Resolving]
  - Cardiogenic shock [Fatal]
  - Fatigue [Recovering/Resolving]
  - Weight decreased [Unknown]
  - Muscular weakness [Recovering/Resolving]
  - Movement disorder [Unknown]
  - Sedation [Unknown]
  - Immune system disorder [Unknown]
  - Drug ineffective [Unknown]
  - Pneumonia [Unknown]
  - Dysstasia [Not Recovered/Not Resolved]
  - Escherichia urinary tract infection [Recovering/Resolving]
  - Extra dose administered [Unknown]
  - Sepsis [Unknown]
  - Secondary progressive multiple sclerosis [Fatal]

NARRATIVE: CASE EVENT DATE: 20141230
